FAERS Safety Report 7038127-0 (Version None)
Quarter: 2010Q4

REPORT INFORMATION
  Report Type: 
  Country: None (occurrence: None)
  Receive Date: 20101011
  Receipt Date: 20101007
  Transmission Date: 20110411
  Serious: Yes (Hospitalization)
  Sender: FDA-Public Use
  Company Number: GB-SANOFI-AVENTIS-2010SA061017

PATIENT
  Sex: Male

DRUGS (3)
  1. LANTUS [Suspect]
  2. SOLOSTAR [Suspect]
  3. NOVORAPID [Concomitant]

REACTIONS (3)
  - AGGRESSION [None]
  - HYPOGLYCAEMIA [None]
  - MEDICATION ERROR [None]
